FAERS Safety Report 9030189 (Version 1)
Quarter: 2013Q1

REPORT INFORMATION
  Report Type: Spontaneous
  Country: US (occurrence: US)
  Receive Date: 20130125
  Receipt Date: 20130125
  Transmission Date: 20140127
  Serious: No
  Sender: FDA-Public Use
  Company Number: US-PFIZER INC-2013026749

PATIENT
  Sex: 0

DRUGS (2)
  1. ZITHROMAX [Suspect]
     Indication: BRONCHITIS
     Dosage: UNK
     Dates: start: 20121224
  2. CIPRO [Suspect]
     Indication: BRONCHITIS
     Dosage: UNK; FOR 2 WEEKS

REACTIONS (3)
  - Drug ineffective [Unknown]
  - Ageusia [Unknown]
  - Anosmia [Unknown]
